FAERS Safety Report 20680974 (Version 1)
Quarter: 2022Q2

REPORT INFORMATION
  Report Type: Spontaneous
  Country: US (occurrence: US)
  Receive Date: 20220406
  Receipt Date: 20220406
  Transmission Date: 20220720
  Serious: No
  Sender: FDA-Public Use
  Company Number: US-CELGENE-USA-20220207614

PATIENT
  Age: 55 Year
  Sex: Female
  Weight: 92.08 kg

DRUGS (2)
  1. REVLIMID [Suspect]
     Active Substance: LENALIDOMIDE
     Indication: Plasma cell myeloma
     Dosage: 18.75 MILLIGRAM
     Route: 048
     Dates: start: 202108
  2. REVLIMID [Suspect]
     Active Substance: LENALIDOMIDE
     Route: 048

REACTIONS (7)
  - Abdominal pain upper [Not Recovered/Not Resolved]
  - Constipation [Unknown]
  - Diarrhoea [Not Recovered/Not Resolved]
  - Asthenia [Not Recovered/Not Resolved]
  - Nausea [Not Recovered/Not Resolved]
  - Anal haemorrhage [Not Recovered/Not Resolved]
  - Gastrointestinal disorder [Unknown]
